FAERS Safety Report 17069899 (Version 2)
Quarter: 2020Q1

REPORT INFORMATION
  Report Type: Spontaneous
  Country: JP (occurrence: JP)
  Receive Date: 20191125
  Receipt Date: 20200102
  Transmission Date: 20200409
  Serious: Yes (Hospitalization, Other)
  Sender: FDA-Public Use
  Company Number: JP-009507513-1909JPN001795J

PATIENT
  Age: 69 Year
  Sex: Male
  Weight: 48 kg

DRUGS (19)
  1. REBAMIPIDE [Concomitant]
     Active Substance: REBAMIPIDE
     Indication: CHRONIC GASTRITIS
     Dosage: 100 MILLIGRAM, TID,AFTER EACH MEAL
     Route: 048
     Dates: end: 20191119
  2. PICIBANIL [Concomitant]
     Active Substance: OK-432
     Indication: MALIGNANT PLEURAL EFFUSION
     Dosage: QD
     Route: 038
     Dates: start: 20190219
  3. XYLOCAINE [Concomitant]
     Active Substance: LIDOCAINE HYDROCHLORIDE
     Dosage: QD
     Route: 051
     Dates: start: 20190219
  4. TERAMURO [Concomitant]
     Indication: HYPERTENSION
     Dosage: 1 DOSAGE FORM, QD
     Route: 048
  5. LOXOPROFEN SODIUM HYDRATE [Concomitant]
     Active Substance: LOXOPROFEN SODIUM DIHYDRATE
     Indication: BACK PAIN
     Dosage: 180 MILLIGRAM, TID
     Route: 048
  6. WARFARIN [Concomitant]
     Active Substance: WARFARIN
     Indication: ATRIAL FIBRILLATION
     Dosage: 2 MILLIGRAM, QD
     Route: 048
     Dates: end: 20191119
  7. ARTIST [Concomitant]
     Active Substance: CARVEDILOL
     Indication: ATRIAL FIBRILLATION
     Dosage: 1.25 MILLIGRAM, BID,AFTER DINNER
     Route: 048
     Dates: end: 20191119
  8. KEYTRUDA [Suspect]
     Active Substance: PEMBROLIZUMAB
     Indication: NON-SMALL CELL LUNG CANCER
     Dosage: 200 MILLIGRAM, Q3W
     Route: 041
     Dates: start: 20190226, end: 20191008
  9. SODIUM FERROUS CITRATE [Concomitant]
     Active Substance: SODIUM FERROUS CITRATE
     Indication: IRON DEFICIENCY ANAEMIA
     Dosage: 2 DOSAGE FORM, QD
     Route: 048
     Dates: start: 20181225
  10. AZOSEMIDE [Concomitant]
     Active Substance: AZOSEMIDE
     Indication: CARDIAC FAILURE
     Dosage: 15 MILLIGRAM, QD
     Route: 048
  11. FEBURIC [Concomitant]
     Active Substance: FEBUXOSTAT
     Indication: HYPERURICAEMIA
     Dosage: 20 MILLIGRAM, QD,AFTER BREAKFAST
     Route: 048
     Dates: end: 20191119
  12. SEISHOKU [Concomitant]
     Active Substance: SODIUM CHLORIDE
     Dosage: 50 MILLILITER
     Route: 051
     Dates: start: 20190813, end: 20190921
  13. TOPILORIC [Concomitant]
     Active Substance: TOPIROXOSTAT
     Indication: HYPERURICAEMIA
     Dosage: 80 MILLIGRAM, BID
     Route: 048
  14. NEXIUM [Concomitant]
     Active Substance: ESOMEPRAZOLE MAGNESIUM
     Indication: GASTRIC ULCER
     Dosage: 20 MILLIGRAM, QD,AFTER BREAKFAST
     Route: 048
     Dates: start: 20181225, end: 20191119
  15. HEPARIN CALCIUM [Concomitant]
     Active Substance: HEPARIN CALCIUM
     Indication: PROPHYLAXIS
     Dosage: 1 (UNITS NOT REPORTED), TID
     Route: 058
     Dates: start: 2019
  16. UNITALC (STERILE TALC) [Concomitant]
     Active Substance: TALC
     Indication: MALIGNANT PLEURAL EFFUSION
     Dosage: 4 GRAM, ONCE
     Route: 038
     Dates: start: 20190215
  17. SEISHOKU [Concomitant]
     Active Substance: SODIUM CHLORIDE
     Dosage: 20 MILLILITER
     Route: 051
     Dates: start: 20190219
  18. MINOCYCLINE [Concomitant]
     Active Substance: MINOCYCLINE HYDROCHLORIDE
     Dosage: UNK
     Route: 051
     Dates: start: 20190219
  19. ZOLPIDEM TARTRATE OD [Concomitant]
     Active Substance: ZOLPIDEM TARTRATE
     Indication: INSOMNIA
     Dosage: 1 DOSAGE FORM, QD,BEFORE SLEEP
     Route: 048
     Dates: start: 20190122, end: 20191119

REACTIONS (6)
  - Cardiac failure [Recovered/Resolved]
  - Oesophagitis [Recovered/Resolved]
  - Myocarditis [Unknown]
  - Rash [Recovering/Resolving]
  - Stomatitis [Recovered/Resolved]
  - Liver function test abnormal [Recovering/Resolving]

NARRATIVE: CASE EVENT DATE: 20190226
